FAERS Safety Report 10043668 (Version 2)
Quarter: 2014Q2

REPORT INFORMATION
  Report Type: Report from Study
  Country: CA (occurrence: CA)
  Receive Date: 20140328
  Receipt Date: 20140505
  Transmission Date: 20141212
  Serious: Yes (Death)
  Sender: FDA-Public Use
  Company Number: CA-JNJFOC-20140315887

PATIENT
  Age: 29 Year
  Sex: Male
  Weight: 126 kg

DRUGS (4)
  1. STELARA [Suspect]
     Indication: PSORIASIS
     Route: 058
     Dates: start: 20120529, end: 20131214
  2. STELARA [Suspect]
     Indication: PSORIASIS
     Route: 058
     Dates: start: 20120529, end: 20131214
  3. HYDROCHLOROTHIAZIDE [Concomitant]
     Route: 065
  4. COVERSYL [Concomitant]
     Route: 065

REACTIONS (2)
  - Myocardial infarction [Fatal]
  - Aortic dissection [Fatal]
